FAERS Safety Report 7592858-2 (Version None)
Quarter: 2011Q3

REPORT INFORMATION
  Report Type: 
  Country: None (occurrence: None)
  Receive Date: 20110706
  Receipt Date: 20110702
  Transmission Date: 20111222
  Serious: No
  Sender: FDA-Public Use
  Company Number: US-PFIZER INC-2011148117

PATIENT
  Sex: Female

DRUGS (2)
  1. PAXIL [Concomitant]
     Dosage: 40 MG
     Dates: end: 20110101
  2. PRISTIQ [Suspect]
     Dosage: 50 MG, 1X/DAY

REACTIONS (1)
  - DIZZINESS [None]
